FAERS Safety Report 25444642 (Version 2)
Quarter: 2025Q3

REPORT INFORMATION
  Report Type: Report from Study
  Country: ZA (occurrence: ZA)
  Receive Date: 20250617
  Receipt Date: 20250701
  Transmission Date: 20251020
  Serious: Yes (Other)
  Sender: NOVARTIS
  Company Number: ZA-002147023-NVSC2025ZA093363

PATIENT
  Age: 51 Year
  Sex: Male
  Weight: 112 kg

DRUGS (1)
  1. COSENTYX [Suspect]
     Active Substance: SECUKINUMAB
     Indication: Psoriatic arthropathy
     Dosage: 300 MG, QMO
     Route: 058
     Dates: start: 20240403

REACTIONS (4)
  - Enthesopathy [Unknown]
  - Arthritis [Unknown]
  - Psoriasis [Unknown]
  - Rheumatoid arthritis [Unknown]
